FAERS Safety Report 12169009 (Version 1)
Quarter: 2016Q1

REPORT INFORMATION
  Report Type: Spontaneous
  Country: US (occurrence: US)
  Receive Date: 20160310
  Receipt Date: 20160310
  Transmission Date: 20160526
  Serious: Yes (Other)
  Sender: FDA-Public Use
  Company Number: US-FRESENIUS KABI-FK201601220

PATIENT

DRUGS (2)
  1. ALISERTIB [Suspect]
     Active Substance: ALISERTIB
     Indication: NEOPLASM
  2. GEMCITABINE [Suspect]
     Active Substance: GEMCITABINE\GEMCITABINE HYDROCHLORIDE
     Indication: NEOPLASM
     Route: 065

REACTIONS (1)
  - Urinary tract infection [Unknown]
